FAERS Safety Report 25304662 (Version 2)
Quarter: 2025Q2

REPORT INFORMATION
  Report Type: Spontaneous
  Country: US (occurrence: US)
  Receive Date: 20250513
  Receipt Date: 20250515
  Transmission Date: 20250716
  Serious: No
  Sender: PFIZER
  Company Number: US-PFIZER INC-202500084752

PATIENT
  Age: 9 Year
  Sex: Male
  Weight: 19.96 kg

DRUGS (1)
  1. GENOTROPIN [Suspect]
     Active Substance: SOMATROPIN
     Dosage: 1.4 MG, DAILY

REACTIONS (3)
  - Device material issue [Unknown]
  - Device use issue [Unknown]
  - Device defective [Unknown]
